FAERS Safety Report 17823756 (Version 5)
Quarter: 2020Q3

REPORT INFORMATION
  Report Type: Spontaneous
  Country: US (occurrence: US)
  Receive Date: 20200526
  Receipt Date: 20200820
  Transmission Date: 20201102
  Serious: No
  Sender: FDA-Public Use
  Company Number: US-PFIZER INC-2020204753

PATIENT
  Age: 75 Year
  Sex: Female
  Weight: 78.01 kg

DRUGS (6)
  1. AZELASTINE HCL [Concomitant]
     Active Substance: AZELASTINE HYDROCHLORIDE
     Dosage: 137 UG
  2. IBRANCE [Suspect]
     Active Substance: PALBOCICLIB
     Dosage: 125 MG, CYCLIC (ONCE DAILY 21 OF 28 DAYS/1 DAILY FOR 21 DAYS)
     Route: 048
     Dates: start: 20200811
  3. BIOTIN [Concomitant]
     Active Substance: BIOTIN
     Dosage: 300 UG
  4. AMIODARONE HCL [Concomitant]
     Active Substance: AMIODARONE HYDROCHLORIDE
     Dosage: 200 MG
  5. COENZYME Q10 [Concomitant]
     Active Substance: DIETARY SUPPLEMENT\UBIDECARENONE
     Dosage: 100 MG
  6. IBRANCE [Suspect]
     Active Substance: PALBOCICLIB
     Indication: BREAST CANCER
     Dosage: 125 MG, CYCLIC (ONCE DAILY 21 OF 28 DAYS)
     Route: 048
     Dates: start: 202005

REACTIONS (6)
  - Fatigue [Unknown]
  - Tumour marker abnormal [Unknown]
  - Full blood count decreased [Unknown]
  - Nausea [Unknown]
  - White blood cell count decreased [Unknown]
  - Diarrhoea [Unknown]

NARRATIVE: CASE EVENT DATE: 2020
